FAERS Safety Report 7649455-X (Version None)
Quarter: 2011Q3

REPORT INFORMATION
  Report Type: 
  Country: None (occurrence: None)
  Receive Date: 20110727
  Receipt Date: 20110718
  Transmission Date: 20111222
  Serious: Yes (Other)
  Sender: FDA-Public Use
  Company Number: 2011SP033856

PATIENT
  Sex: Female

DRUGS (4)
  1. ORTHO-NOVUM [Concomitant]
  2. ZOLPIDEM [Concomitant]
  3. MIRALAX [Suspect]
     Route: 048
     Dates: start: 20110718
  4. LEXAPRO [Concomitant]

REACTIONS (2)
  - PHARYNGEAL OEDEMA [None]
  - URTICARIA [None]
